FAERS Safety Report 8883441 (Version 1)
Quarter: 2012Q4

REPORT INFORMATION
  Report Type: 
  Country: US (occurrence: US)
  Receive Date: 20121102
  Receipt Date: 20121102
  Transmission Date: 20130627
  Serious: No
  Sender: FDA-Public Use
  Company Number: US-BAYER-2012-115423

PATIENT
  Age: 44 Year
  Sex: Female

DRUGS (1)
  1. BETASERON [Suspect]
     Indication: MS
     Dosage: 0.25 mg, QOD
     Route: 058
     Dates: start: 201205

REACTIONS (2)
  - Depression [None]
  - Nasopharyngitis [None]
